FAERS Safety Report 8376954-8 (Version None)
Quarter: 2012Q2

REPORT INFORMATION
  Report Type: 
  Country: None (occurrence: None)
  Receive Date: 20120522
  Receipt Date: 20120510
  Transmission Date: 20120825
  Serious: Yes (Other)
  Sender: FDA-Public Use
  Company Number: JP-ELI_LILLY_AND_COMPANY-JP201205003880

PATIENT
  Age: 75 Year
  Sex: Male

DRUGS (5)
  1. GEMCITABINE HYDROCHLORIDE [Suspect]
     Dosage: 1000 MG/M2, OTHER
     Route: 042
  2. TS 1 [Concomitant]
     Dosage: 40 MG, BID
     Route: 048
  3. GEMCITABINE HYDROCHLORIDE [Suspect]
     Dosage: 800 MG/M2, UNK
     Route: 042
  4. CISPLATIN [Concomitant]
     Indication: BILE DUCT CANCER
     Dosage: 25 MG/M2, OTHER
     Route: 042
  5. TS 1 [Concomitant]
     Indication: BILE DUCT CANCER
     Dosage: 30 MG, BID
     Route: 048

REACTIONS (1)
  - PRESYNCOPE [None]
